FAERS Safety Report 6663111-6 (Version None)
Quarter: 2010Q2

REPORT INFORMATION
  Report Type: 
  Country: None (occurrence: None)
  Receive Date: 20100401
  Receipt Date: 20100329
  Transmission Date: 20101027
  Serious: Yes (Other)
  Sender: FDA-Public Use
  Company Number: FR-KINGPHARMUSA00001-K201000371

PATIENT
  Age: 55 Year
  Sex: Male

DRUGS (2)
  1. SEPTRA [Suspect]
     Indication: WHIPPLE'S DISEASE
     Dosage: 1 DF, BID
  2. CEFTRIAXONE [Suspect]
     Indication: WHIPPLE'S DISEASE
     Dosage: 2 G, QD
     Route: 042

REACTIONS (5)
  - ERYTHEMA [None]
  - IMMUNE RECONSTITUTION SYNDROME [None]
  - NODULE ON EXTREMITY [None]
  - PYREXIA [None]
  - SKIN LESION [None]
